FAERS Safety Report 10690395 (Version 2)
Quarter: 2015Q1

REPORT INFORMATION
  Report Type: Spontaneous
  Country: IL (occurrence: IL)
  Receive Date: 20150105
  Receipt Date: 20150306
  Transmission Date: 20150720
  Serious: Yes (Death, Other)
  Sender: FDA-Public Use
  Company Number: IL-CELGENE-ISR-2014124164

PATIENT

DRUGS (9)
  1. ETOPOSIDE. [Concomitant]
     Active Substance: ETOPOSIDE
     Indication: PLASMA CELL MYELOMA
     Route: 065
     Dates: start: 2004, end: 2013
  2. MELPHALAN [Concomitant]
     Active Substance: MELPHALAN
     Indication: PRODUCT USED FOR UNKNOWN INDICATION
     Route: 065
  3. THALIDOMIDE CELGENE [Suspect]
     Active Substance: THALIDOMIDE
     Indication: PLASMA CELL MYELOMA
     Route: 048
     Dates: start: 2004, end: 2013
  4. DOXORUBICIN [Concomitant]
     Active Substance: DOXORUBICIN
     Indication: PLASMA CELL MYELOMA
     Route: 065
     Dates: start: 2004, end: 2013
  5. G-CSF [Concomitant]
     Active Substance: GRANULOCYTE COLONY-STIMULATING FACTOR NOS
     Indication: PRODUCT USED FOR UNKNOWN INDICATION
     Route: 065
  6. DEXAMETHASONE. [Concomitant]
     Active Substance: DEXAMETHASONE
     Indication: PLASMA CELL MYELOMA
     Route: 065
     Dates: start: 2004, end: 2013
  7. CYCLOPHOSPHAMIDE. [Concomitant]
     Active Substance: CYCLOPHOSPHAMIDE
     Indication: PLASMA CELL MYELOMA
     Route: 065
     Dates: start: 2004, end: 2013
  8. CISPLATINUM [Concomitant]
     Active Substance: CISPLATIN
     Indication: PLASMA CELL MYELOMA
     Route: 065
     Dates: start: 2004, end: 2013
  9. BORTEZOMIB [Concomitant]
     Active Substance: BORTEZOMIB
     Indication: PLASMA CELL MYELOMA
     Route: 065
     Dates: start: 2004, end: 2013

REACTIONS (13)
  - Thrombocytopenia [Unknown]
  - Febrile neutropenia [Unknown]
  - Sepsis [Fatal]
  - Neutropenia [Unknown]
  - Venous thrombosis [Unknown]
  - Peripheral sensory neuropathy [Unknown]
  - Drug hypersensitivity [Unknown]
  - Renal failure [Unknown]
  - Plasma cell myeloma [Fatal]
  - Multi-organ failure [Fatal]
  - Intestinal perforation [Fatal]
  - Infection [Fatal]
  - Arrhythmia [Fatal]
